FAERS Safety Report 16472662 (Version 2)
Quarter: 2019Q2

REPORT INFORMATION
  Report Type: Spontaneous
  Country: TW (occurrence: TW)
  Receive Date: 20190625
  Receipt Date: 20190628
  Transmission Date: 20190711
  Serious: Yes (Hospitalization)
  Sender: FDA-Public Use
  Company Number: TW-GILEAD-2019-0414672

PATIENT
  Age: 58 Year
  Sex: Female

DRUGS (5)
  1. VIREAD [Suspect]
     Active Substance: TENOFOVIR DISOPROXIL FUMARATE
     Indication: HEPATITIS B
     Dosage: 300 MG, QD
     Route: 065
     Dates: end: 20170318
  2. RITUXIMAB. [Concomitant]
     Active Substance: RITUXIMAB
  3. VIREAD [Suspect]
     Active Substance: TENOFOVIR DISOPROXIL FUMARATE
     Dosage: 300 MG, QD
     Route: 065
     Dates: start: 20170718
  4. ENTECAVIR. [Concomitant]
     Active Substance: ENTECAVIR
  5. CHOP [Concomitant]
     Active Substance: CYCLOPHOSPHAMIDE\DOXORUBICIN\PREDNISONE\VINCRISTINE

REACTIONS (1)
  - Hepatic function abnormal [Recovered/Resolved]
